FAERS Safety Report 10169930 (Version 2)
Quarter: 2014Q2

REPORT INFORMATION
  Report Type: Spontaneous
  Country: DE (occurrence: DE)
  Receive Date: 20140513
  Receipt Date: 20140527
  Transmission Date: 20141212
  Serious: Yes (Other)
  Sender: FDA-Public Use
  Company Number: DE-UCBSA-120558

PATIENT
  Age: 79 Year
  Sex: Female
  Weight: 65 kg

DRUGS (1)
  1. LEVETIRACETAM UCB [Suspect]
     Indication: EPILEPSY
     Dosage: 500MG (MORNING TABLET DIVIDED, WHICH IS WRONG TECHNIQUE OF USAGE)
     Route: 048
     Dates: start: 2012

REACTIONS (3)
  - Haematoma [Unknown]
  - Product quality issue [Unknown]
  - Wrong technique in drug usage process [Unknown]
